FAERS Safety Report 8567429-1 (Version None)
Quarter: 2012Q3

REPORT INFORMATION
  Report Type: 
  Country: None (occurrence: None)
  Receive Date: 20120803
  Receipt Date: 20120801
  Transmission Date: 20120928
  Serious: Yes (Hospitalization)
  Sender: FDA-Public Use
  Company Number: JP-EISAI INC-E2090-02113-SPO-JP

PATIENT
  Sex: Female

DRUGS (3)
  1. ROXATIDINE ACETATE HCL [Concomitant]
     Indication: GASTRITIS PROPHYLAXIS
     Route: 048
     Dates: start: 20110723, end: 20110815
  2. PREDNISOLONE [Concomitant]
     Indication: BRAIN OEDEMA
     Route: 048
     Dates: start: 20110723, end: 20110815
  3. ZONISAMIDE [Suspect]
     Indication: CONVULSION PROPHYLAXIS
     Dosage: UNKNOWN
     Route: 048
     Dates: start: 20110723, end: 20110815

REACTIONS (1)
  - DRUG RASH WITH EOSINOPHILIA AND SYSTEMIC SYMPTOMS [None]
